FAERS Safety Report 4347454-7 (Version None)
Quarter: 2004Q2

REPORT INFORMATION
  Report Type: 
  Country: None (occurrence: None)
  Receive Date: 20040421
  Receipt Date: 20040205
  Transmission Date: 20050107
  Serious: Yes (Other)
  Sender: FDA-Public Use
  Company Number: 2004002111

PATIENT
  Age: 38 Year
  Sex: Female

DRUGS (1)
  1. RELPAX [Suspect]
     Indication: MIGRAINE
     Dosage: ORAL
     Route: 048
     Dates: start: 20040109

REACTIONS (4)
  - ABNORMAL DREAMS [None]
  - DISSOCIATION [None]
  - HALLUCINATION [None]
  - THROAT TIGHTNESS [None]
